FAERS Safety Report 10270037 (Version 3)
Quarter: 2014Q4

REPORT INFORMATION
  Report Type: Report from Study
  Country: US (occurrence: US)
  Receive Date: 20140701
  Receipt Date: 20141222
  Transmission Date: 20150528
  Serious: Yes (Other)
  Sender: FDA-Public Use
  Company Number: US-JNJFOC-20140618892

PATIENT
  Sex: Male
  Weight: 130.18 kg

DRUGS (6)
  1. INVOKANA [Suspect]
     Active Substance: CANAGLIFLOZIN
     Indication: TYPE 2 DIABETES MELLITUS
     Route: 048
     Dates: start: 201304
  2. BYDUREON [Suspect]
     Active Substance: EXENATIDE
     Indication: PRODUCT USED FOR UNKNOWN INDICATION
  3. GLIMEPIRIDE. [Concomitant]
     Active Substance: GLIMEPIRIDE
     Indication: DIABETES MELLITUS
  4. METFORMIN [Concomitant]
     Active Substance: METFORMIN HYDROCHLORIDE
     Indication: DIABETES MELLITUS
  5. VICTOZA [Suspect]
     Active Substance: LIRAGLUTIDE
     Indication: PRODUCT USED FOR UNKNOWN INDICATION
     Dates: start: 2013, end: 2013
  6. GLIMEPIRIDE. [Concomitant]
     Active Substance: GLIMEPIRIDE
     Indication: DIABETES MELLITUS

REACTIONS (8)
  - Abnormal loss of weight [Not Recovered/Not Resolved]
  - Adverse event [Unknown]
  - Injection site nodule [Unknown]
  - Injection site mass [Unknown]
  - Joint injury [Unknown]
  - Gastric disorder [Unknown]
  - Thirst [Not Recovered/Not Resolved]
  - Blood glucose decreased [Unknown]

NARRATIVE: CASE EVENT DATE: 2013
